FAERS Safety Report 23288522 (Version 1)
Quarter: 2023Q4

REPORT INFORMATION
  Report Type: Spontaneous
  Country: CN (occurrence: CN)
  Receive Date: 20231212
  Receipt Date: 20231212
  Transmission Date: 20240109
  Serious: Yes (Hospitalization)
  Sender: FDA-Public Use
  Company Number: CN-GLAXOSMITHKLINE-CNCH2023APC060516

PATIENT
  Age: 54 Year
  Sex: Female

DRUGS (7)
  1. DICLOFENAC SODIUM [Suspect]
     Active Substance: DICLOFENAC\DICLOFENAC SODIUM
     Indication: Analgesic therapy
     Dosage: 25 MG, TID
     Route: 048
     Dates: start: 20231026, end: 20231031
  2. DICLOFENAC SODIUM [Suspect]
     Active Substance: DICLOFENAC\DICLOFENAC SODIUM
     Indication: Infection
  3. CEFTAZIDIME [Suspect]
     Active Substance: CEFTAZIDIME
     Indication: Infection
     Dosage: 2 G, BID
     Route: 042
     Dates: start: 20231024, end: 202310
  4. CEFTAZIDIME [Suspect]
     Active Substance: CEFTAZIDIME
     Dosage: 2 G, TID
     Route: 042
     Dates: start: 20231026, end: 20231026
  5. MEROPENEM [Suspect]
     Active Substance: MEROPENEM
     Indication: Infection
     Dosage: 0.5 G, TID
     Route: 042
     Dates: start: 20231026, end: 20231104
  6. GLUTATHIONE [Suspect]
     Active Substance: GLUTATHIONE
     Indication: Infection
     Dosage: 1.2 G, QD
     Route: 042
     Dates: start: 20231026, end: 20231118
  7. SODIUM CHLORIDE [Suspect]
     Active Substance: SODIUM CHLORIDE
     Indication: Infection
     Dosage: 100 ML
     Route: 065
     Dates: start: 20231024, end: 2023

REACTIONS (5)
  - Pruritus [Recovering/Resolving]
  - Musculoskeletal discomfort [Recovering/Resolving]
  - Discomfort [Recovering/Resolving]
  - Rash [Recovering/Resolving]
  - Product use in unapproved indication [Unknown]

NARRATIVE: CASE EVENT DATE: 20231026
